FAERS Safety Report 4804284-7 (Version None)
Quarter: 2005Q4

REPORT INFORMATION
  Report Type: 
  Country: None (occurrence: None)
  Receive Date: 20051017
  Receipt Date: 20521003
  Transmission Date: 20060501
  Serious: Yes (Other)
  Sender: FDA-Public Use
  Company Number: 2005138175

PATIENT
  Age: 72 Year
  Sex: Female

DRUGS (1)
  1. MINOXIDIL [Suspect]
     Indication: ALOPECIA
     Dosage: 5% - AMOUNT AND FREQUENCY

REACTIONS (6)
  - ALLERGY TEST POSITIVE [None]
  - DERMATITIS CONTACT [None]
  - DRUG HYPERSENSITIVITY [None]
  - DRUG INEFFECTIVE [None]
  - LOCALISED OEDEMA [None]
  - PERIORBITAL OEDEMA [None]
